FAERS Safety Report 20463038 (Version 3)
Quarter: 2022Q1

REPORT INFORMATION
  Report Type: Report from Study
  Country: US (occurrence: US)
  Receive Date: 20220211
  Receipt Date: 20220302
  Transmission Date: 20220423
  Serious: Yes (Hospitalization)
  Sender: FDA-Public Use
  Company Number: US-TG THERAPEUTICS INC.-TGT002419

PATIENT
  Age: 69 Year
  Sex: Female
  Weight: 82 kg

DRUGS (4)
  1. UBLITUXIMAB [Suspect]
     Active Substance: UBLITUXIMAB
     Indication: Chronic lymphocytic leukaemia
     Dosage: 900 MILLIGRAM
     Route: 042
     Dates: start: 20171204, end: 20211026
  2. UBLITUXIMAB [Suspect]
     Active Substance: UBLITUXIMAB
     Dosage: 900 MILLIGRAM
     Route: 042
     Dates: start: 20211216
  3. UMBRALISIB [Suspect]
     Active Substance: UMBRALISIB
     Indication: Chronic lymphocytic leukaemia
     Dosage: 400 MILLIGRAM
     Route: 048
     Dates: start: 20171204, end: 20211026
  4. UMBRALISIB [Suspect]
     Active Substance: UMBRALISIB
     Dosage: 400 MILLIGRAM
     Route: 048
     Dates: start: 20211216

REACTIONS (1)
  - COVID-19 [Recovered/Resolved]

NARRATIVE: CASE EVENT DATE: 20211025
